FAERS Safety Report 10264750 (Version 2)
Quarter: 2014Q2

REPORT INFORMATION
  Report Type: Spontaneous
  Country: US (occurrence: US)
  Receive Date: 20140627
  Receipt Date: 20140627
  Transmission Date: 20141212
  Serious: No
  Sender: FDA-Public Use
  Company Number: US-SHIRE-US201401358

PATIENT
  Sex: Female
  Weight: 17.69 kg

DRUGS (1)
  1. VPRIV [Suspect]
     Indication: GAUCHER^S DISEASE
     Dosage: 1200 IU, 1X/2WKS
     Route: 041
     Dates: start: 2014

REACTIONS (1)
  - Upper respiratory tract infection [Recovered/Resolved]
